FAERS Safety Report 5796313-1 (Version None)
Quarter: 2008Q2

REPORT INFORMATION
  Report Type: 
  Country: None (occurrence: None)
  Receive Date: 20080627
  Receipt Date: 20080619
  Transmission Date: 20081010
  Serious: Yes (Hospitalization)
  Sender: FDA-Public Use
  Company Number: 235887J08USA

PATIENT
  Age: 56 Year
  Sex: Female
  Weight: 55.3388 kg

DRUGS (2)
  1. REBIF [Suspect]
     Indication: MULTIPLE SCLEROSIS
     Dosage: 44 MCG, 3 IN 1 WEEKS, SUBCUTANEOUS
     Route: 058
     Dates: start: 20060802
  2. EXCEDRIN     (EXCEDRIN /00214201/) [Concomitant]

REACTIONS (4)
  - INJECTION SITE PAIN [None]
  - TEMPOROMANDIBULAR JOINT SYNDROME [None]
  - ULCER [None]
  - WEIGHT DECREASED [None]
